FAERS Safety Report 21750650 (Version 1)
Quarter: 2022Q4

REPORT INFORMATION
  Report Type: Spontaneous
  Country: GB (occurrence: GB)
  Receive Date: 20221219
  Receipt Date: 20221219
  Transmission Date: 20230113
  Serious: Yes (Other)
  Sender: FDA-Public Use
  Company Number: GB-ADVANZ PHARMA-202210007182

PATIENT
  Sex: Female

DRUGS (4)
  1. LEVOTHYROXINE [Suspect]
     Active Substance: LEVOTHYROXINE
     Indication: Product used for unknown indication
     Dosage: UNK, REDUCED THE DOSE TO 50 UG PER DAY
  2. LEVOTHYROXINE [Suspect]
     Active Substance: LEVOTHYROXINE
     Indication: Autoimmune thyroiditis
     Dosage: 25 MCG (TOTAL DOSE 75 UG AS 50 UG ACCORD + 25 UG MERCURY PHARMA),AT TIME OF GETTING SYMPTOMS, STRENG
  3. LEVOTHYROXINE [Suspect]
     Active Substance: LEVOTHYROXINE
     Dosage: UNK, REDUCED THE DOSE TO 50 UG PER DAY, STRENGTH : 25 MCG
  4. LEVOTHYROXINE [Suspect]
     Active Substance: LEVOTHYROXINE
     Indication: Autoimmune thyroiditis
     Dosage: 50 UG, ACCORD-UK LIMITED, OVER 20 YEARS, STRENGTH : 50 MCG

REACTIONS (3)
  - Heart rate increased [Not Recovered/Not Resolved]
  - Muscle spasms [Not Recovered/Not Resolved]
  - Hot flush [Not Recovered/Not Resolved]
